FAERS Safety Report 19548007 (Version 1)
Quarter: 2021Q3

REPORT INFORMATION
  Report Type: Spontaneous
  Country: DE (occurrence: DE)
  Receive Date: 20210714
  Receipt Date: 20210714
  Transmission Date: 20211014
  Serious: Yes (Life-Threatening)
  Sender: FDA-Public Use
  Company Number: DE-STEMLINE THERAPEUTICS, INC.-2021ST000035

PATIENT
  Age: 83 Year
  Sex: Male

DRUGS (3)
  1. MEROPENEM. [Concomitant]
     Active Substance: MEROPENEM
     Indication: INFECTION
     Dosage: 1?1?1
     Route: 042
     Dates: start: 20210506, end: 20210517
  2. ELZONRIS [Suspect]
     Active Substance: TAGRAXOFUSP-ERZS
     Indication: PRODUCT USED FOR UNKNOWN INDICATION
     Dosage: FIRST CYCLE; DAY 1 TO DAY 3 OF A 5?DAY CYCLE
     Route: 042
     Dates: start: 20210504, end: 20210506
  3. METHYLPREDNISOLON [Concomitant]
     Active Substance: METHYLPREDNISOLONE
     Indication: CAPILLARY LEAK SYNDROME
     Route: 042
     Dates: start: 20210507, end: 20210509

REACTIONS (1)
  - Capillary leak syndrome [Recovered/Resolved]

NARRATIVE: CASE EVENT DATE: 20210506
